FAERS Safety Report 11553019 (Version 1)
Quarter: 2015Q3

REPORT INFORMATION
  Report Type: Spontaneous
  Country: US (occurrence: US)
  Receive Date: 20150925
  Receipt Date: 20150925
  Transmission Date: 20151125
  Serious: Yes (Other)
  Sender: FDA-Public Use
  Company Number: US-SUN PHARMACEUTICAL INDUSTRIES LTD-2015US-103434

PATIENT
  Age: 51 Year
  Sex: Female
  Weight: 86 kg

DRUGS (1)
  1. TRAMADOL. [Suspect]
     Active Substance: TRAMADOL
     Indication: FIBROMYALGIA
     Dosage: 50 MG, QD
     Route: 048
     Dates: start: 20101124, end: 201112

REACTIONS (7)
  - Somnolence [Unknown]
  - Headache [Unknown]
  - Abnormal dreams [Unknown]
  - Dizziness [Unknown]
  - Nausea [Unknown]
  - Depression [Unknown]
  - Insomnia [Unknown]
